FAERS Safety Report 14721460 (Version 4)
Quarter: 2019Q3

REPORT INFORMATION
  Report Type: Spontaneous
  Country: US (occurrence: US)
  Receive Date: 20180405
  Receipt Date: 20190801
  Transmission Date: 20191004
  Serious: Yes (Hospitalization, Other)
  Sender: FDA-Public Use
  Company Number: US-GLAXOSMITHKLINE-US2018GSK057977

PATIENT
  Sex: Male

DRUGS (7)
  1. PREVACID [Suspect]
     Active Substance: LANSOPRAZOLE
     Indication: GASTROOESOPHAGEAL REFLUX DISEASE
     Dosage: 40 MG, QD
     Route: 065
  2. PREVACID [Suspect]
     Active Substance: LANSOPRAZOLE
     Dosage: 30 MG, QD
     Route: 048
  3. ESOMEPRAZOLE. [Suspect]
     Active Substance: ESOMEPRAZOLE MAGNESIUM
     Indication: PRODUCT USED FOR UNKNOWN INDICATION
     Dosage: UNK
     Route: 065
  4. PREVACID [Suspect]
     Active Substance: LANSOPRAZOLE
     Indication: PRODUCT USED FOR UNKNOWN INDICATION
     Dosage: 15 MG, QD
     Route: 065
  5. OMEPRAZOLE. [Suspect]
     Active Substance: OMEPRAZOLE
     Indication: PRODUCT USED FOR UNKNOWN INDICATION
     Dosage: UNK
     Route: 065
  6. LANSOPRAZOLE. [Suspect]
     Active Substance: LANSOPRAZOLE
     Indication: PRODUCT USED FOR UNKNOWN INDICATION
     Dosage: UNK
     Route: 065
  7. PANTOPRAZOLE [Suspect]
     Active Substance: PANTOPRAZOLE
     Indication: PRODUCT USED FOR UNKNOWN INDICATION
     Dosage: UNK
     Route: 065

REACTIONS (22)
  - Nephrosclerosis [Unknown]
  - Nephrotic syndrome [Unknown]
  - Glomerular filtration rate decreased [Unknown]
  - Micturition urgency [Unknown]
  - End stage renal disease [Unknown]
  - Haematuria [Unknown]
  - Nocturia [Unknown]
  - Glomerulonephritis [Unknown]
  - Nephritis [Unknown]
  - Renal injury [Unknown]
  - Chronic kidney disease [Unknown]
  - Nephropathy [Unknown]
  - Renal disorder [Unknown]
  - Acute kidney injury [Not Recovered/Not Resolved]
  - Renal failure [Unknown]
  - Pulmonary renal syndrome [Unknown]
  - Nephrogenic anaemia [Unknown]
  - Dialysis [Not Recovered/Not Resolved]
  - Device dependence [Unknown]
  - Proteinuria [Unknown]
  - Renal atrophy [Unknown]
  - Focal segmental glomerulosclerosis [Unknown]
